FAERS Safety Report 20535907 (Version 2)
Quarter: 2024Q4

REPORT INFORMATION
  Report Type: Spontaneous
  Country: FI (occurrence: FI)
  Receive Date: 20220302
  Receipt Date: 20241121
  Transmission Date: 20250114
  Serious: Yes (Other)
  Sender: AMGEN
  Company Number: FI-ABBVIE-22K-055-4286577-00

PATIENT
  Age: 50 Year
  Sex: Female

DRUGS (2)
  1. ADALIMUMAB [Suspect]
     Active Substance: ADALIMUMAB
     Indication: Product used for unknown indication
     Dosage: UNK
     Route: 058
  2. RITUXIMAB [Suspect]
     Active Substance: RITUXIMAB
     Indication: Product used for unknown indication
     Dosage: UNK
     Route: 065

REACTIONS (10)
  - Hip arthroplasty [Unknown]
  - Rheumatic disorder [Unknown]
  - Rheumatoid arthritis [Unknown]
  - Joint effusion [Unknown]
  - C-reactive protein abnormal [Unknown]
  - Tenosynovitis [Unknown]
  - Synovitis [Unknown]
  - Post procedural infection [Unknown]
  - Staphylococcal infection [Recovered/Resolved with Sequelae]
  - Purulence [Recovered/Resolved with Sequelae]

NARRATIVE: CASE EVENT DATE: 20120101
